FAERS Safety Report 5687498-6 (Version None)
Quarter: 2008Q1

REPORT INFORMATION
  Report Type: 
  Country: None (occurrence: None)
  Receive Date: 20080328
  Receipt Date: 20061204
  Transmission Date: 20080703
  Serious: No
  Sender: FDA-Public Use
  Company Number: US-BAYER-US-2006-038302

PATIENT
  Age: 34 Year
  Sex: Female

DRUGS (2)
  1. MIRENA [Suspect]
     Indication: DYSMENORRHOEA
     Route: 015
     Dates: start: 20061101, end: 20061201
  2. ZOLOFT [Concomitant]
     Dosage: UNIT DOSE: 200 MG

REACTIONS (2)
  - ABDOMINAL PAIN [None]
  - PELVIC PAIN [None]
